FAERS Safety Report 5099868-8 (Version None)
Quarter: 2006Q3

REPORT INFORMATION
  Report Type: 
  Country: None (occurrence: None)
  Receive Date: 20060906
  Receipt Date: 20060906
  Transmission Date: 20061208
  Serious: Yes (Life-Threatening, Hospitalization)
  Sender: FDA-Public Use
  Company Number: None

PATIENT
  Age: 69 Year
  Sex: Female
  Weight: 68.0396 kg

DRUGS (2)
  1. ALEVE [Suspect]
     Indication: LIMB INJURY
     Dosage: 1-2 DAILY DEC-APRIL PRN 12 HOURS APART PO
     Route: 048
     Dates: start: 20051215
  2. ALEVE [Suspect]
     Indication: SURGERY
     Dosage: 1-2 DAILY DEC-APRIL PRN 12 HOURS APART PO
     Route: 048
     Dates: start: 20051215

REACTIONS (10)
  - DIVERTICULUM [None]
  - FALL [None]
  - GASTRIC DISORDER [None]
  - GASTROINTESTINAL HAEMORRHAGE [None]
  - HELICOBACTER GASTRITIS [None]
  - HIATUS HERNIA [None]
  - MEDICATION ERROR [None]
  - OESOPHAGEAL DISORDER [None]
  - OESOPHAGEAL HAEMORRHAGE [None]
  - ULCER [None]
